FAERS Safety Report 8570423 (Version 2)
Quarter: 2012Q4

REPORT INFORMATION
  Report Type: 
  Country: JP (occurrence: JP)
  Receive Date: 20120521
  Receipt Date: 20121029
  Transmission Date: 20130627
  Serious: Yes (Other)
  Sender: FDA-Public Use
  Company Number: PHHY2012JP032664

PATIENT
  Age: 71 Year
  Sex: Male
  Weight: 47 kg

DRUGS (8)
  1. EXJADE [Suspect]
     Indication: IRON OVERLOAD
     Dosage: 625 mg, daily
     Route: 048
     Dates: start: 20120329, end: 20120411
  2. RENIVACE [Concomitant]
     Indication: HYPERTENSION
     Dosage: 10 mg, UNK
     Route: 048
     Dates: start: 20120329, end: 20120411
  3. AMLODIPINE [Concomitant]
     Indication: HYPERTENSION
     Dosage: 5 mg, UNK
     Route: 048
     Dates: start: 20120329, end: 20120411
  4. JANUVIA [Concomitant]
     Indication: DIABETES MELLITUS
     Dosage: 50 mg, UNK
     Route: 048
     Dates: start: 20120329, end: 20120411
  5. OZEX [Concomitant]
     Dosage: 450 mg, UNK
     Route: 048
     Dates: start: 20120329, end: 20120404
  6. LAC B [Concomitant]
     Dosage: 3 g, UNK
     Route: 048
     Dates: start: 20120329, end: 20120411
  7. KENTAN [Concomitant]
     Route: 048
  8. ISODINE [Concomitant]

REACTIONS (7)
  - Fall [Recovered/Resolved]
  - Injury [Recovered/Resolved]
  - Dizziness [Recovered/Resolved]
  - Hearing impaired [Recovered/Resolved]
  - Visual acuity reduced [Recovered/Resolved]
  - Dysstasia [Unknown]
  - Balance disorder [Unknown]
